FAERS Safety Report 6912236-6 (Version None)
Quarter: 2010Q3

REPORT INFORMATION
  Report Type: 
  Country: None (occurrence: None)
  Receive Date: 20100806
  Receipt Date: 20080408
  Transmission Date: 20110219
  Serious: No
  Sender: FDA-Public Use
  Company Number: US-PFIZER INC-2008012281

PATIENT
  Sex: Female
  Weight: 86.18 kg

DRUGS (4)
  1. DETROL LA [Suspect]
     Indication: URGE INCONTINENCE
     Route: 048
     Dates: start: 20080201
  2. DETROL LA [Suspect]
     Indication: POLLAKIURIA
  3. LIPITOR [Concomitant]
  4. LISINOPRIL [Concomitant]

REACTIONS (3)
  - DRY MOUTH [None]
  - POLLAKIURIA [None]
  - URINE OUTPUT INCREASED [None]
